FAERS Safety Report 4726982-6 (Version None)
Quarter: 2005Q3

REPORT INFORMATION
  Report Type: 
  Country: None (occurrence: None)
  Receive Date: 20050726
  Receipt Date: 20050712
  Transmission Date: 20060218
  Serious: Yes (Hospitalization)
  Sender: FDA-Public Use
  Company Number: 204214

PATIENT
  Age: 46 Year
  Sex: Male

DRUGS (2)
  1. AVONEX [Suspect]
     Indication: MULTIPLE SCLEROSIS
     Dosage: 30 UG; QW; IM
     Route: 030
     Dates: start: 20010525, end: 20031101
  2. AVONEX [Suspect]
     Indication: MULTIPLE SCLEROSIS
     Dosage: 30 UG; QW; IM
     Route: 030
     Dates: start: 20031101

REACTIONS (11)
  - BLOOD DISORDER [None]
  - CONDITION AGGRAVATED [None]
  - DIFFICULTY IN WALKING [None]
  - GASTROINTESTINAL DISORDER [None]
  - HENOCH-SCHONLEIN PURPURA [None]
  - MULTIPLE SCLEROSIS [None]
  - NAUSEA [None]
  - PAIN [None]
  - RASH GENERALISED [None]
  - VISION BLURRED [None]
  - VOMITING [None]
